FAERS Safety Report 6109883-0 (Version None)
Quarter: 2009Q1

REPORT INFORMATION
  Report Type: 
  Country: None (occurrence: None)
  Receive Date: 20090310
  Receipt Date: 20080731
  Transmission Date: 20090719
  Serious: No
  Sender: FDA-Public Use
  Company Number: A0740413A

PATIENT
  Age: 76 Year
  Sex: Male

DRUGS (3)
  1. NICORETTE [Suspect]
     Dates: start: 20080727
  2. ATIVAN [Concomitant]
  3. BUSPAR [Concomitant]

REACTIONS (2)
  - ANXIETY [None]
  - POOR QUALITY SLEEP [None]
